FAERS Safety Report 4521250-X (Version None)
Quarter: 2004Q4

REPORT INFORMATION
  Report Type: 
  Country: None (occurrence: None)
  Receive Date: 20041203
  Receipt Date: 20041122
  Transmission Date: 20050328
  Serious: Yes (Hospitalization)
  Sender: FDA-Public Use
  Company Number: 2004CG02020

PATIENT
  Age: 71 Year
  Sex: Male

DRUGS (2)
  1. CRESTOR [Suspect]
     Dosage: 10 MG QD PO
     Route: 048
     Dates: start: 20040502, end: 20040914
  2. LOXEN [Concomitant]

REACTIONS (10)
  - BLOOD IMMUNOGLOBULIN A INCREASED [None]
  - BLOOD IMMUNOGLOBULIN G INCREASED [None]
  - BLOOD IMMUNOGLOBULIN M INCREASED [None]
  - CHOLESTASIS [None]
  - EOSINOPHILIA [None]
  - GAMMOPATHY [None]
  - JAUNDICE [None]
  - PNEUMONITIS [None]
  - RENAL FAILURE ACUTE [None]
  - RHABDOMYOLYSIS [None]
